FAERS Safety Report 6257810-8 (Version None)
Quarter: 2009Q3

REPORT INFORMATION
  Report Type: 
  Country: None (occurrence: None)
  Receive Date: 20090706
  Receipt Date: 20090702
  Transmission Date: 20100115
  Serious: Yes (Death, Hospitalization, Other)
  Sender: FDA-Public Use
  Company Number: US-ABBOTT-09P-163-0583221-00

PATIENT
  Sex: Male
  Weight: 106 kg

DRUGS (7)
  1. ZEMPLAR [Suspect]
     Indication: HYPERPARATHYROIDISM
     Route: 042
     Dates: start: 20090409, end: 20090620
  2. ASPIRIN [Concomitant]
     Indication: DRUG USE FOR UNKNOWN INDICATION
  3. ISOSORBIDE DINITRATE [Concomitant]
     Indication: HYPERTENSION
  4. COREG [Concomitant]
     Indication: HYPERTENSION
  5. NEPRO [Concomitant]
     Indication: VITAMIN SUPPLEMENTATION
  6. COZAAR [Concomitant]
     Indication: HYPERTENSION
  7. PHOSLO [Concomitant]
     Indication: BLOOD PHOSPHORUS INCREASED

REACTIONS (8)
  - CARDIAC ARREST [None]
  - CARDIOMEGALY [None]
  - CHILLS [None]
  - HAEMATOCRIT DECREASED [None]
  - HYPERTENSIVE HEART DISEASE [None]
  - PULMONARY OEDEMA [None]
  - PYREXIA [None]
  - TRANSPLANT FAILURE [None]
